FAERS Safety Report 7469335-2 (Version None)
Quarter: 2011Q2

REPORT INFORMATION
  Report Type: 
  Country: None (occurrence: None)
  Receive Date: 20110506
  Receipt Date: 20110506
  Transmission Date: 20111010
  Serious: Yes (Death)
  Sender: FDA-Public Use
  Company Number: None

PATIENT
  Sex: Male

DRUGS (2)
  1. WELLBUTRIN SR [Suspect]
     Indication: INSOMNIA
     Dosage: SUPPOSED TO TAKE 1 TABLET IN THE MORNING
     Dates: start: 20101101, end: 20110316
  2. CITALOPRAM HYDROBROMIDE [Suspect]
     Indication: INSOMNIA
     Dosage: SUPPOSED TO TAKE 1-2 TABLETS DAILY
     Dates: start: 20101101, end: 20110316

REACTIONS (5)
  - APHASIA [None]
  - IMPAIRED WORK ABILITY [None]
  - TREMOR [None]
  - DROWNING [None]
  - COMPLETED SUICIDE [None]
